FAERS Safety Report 22751635 (Version 3)
Quarter: 2023Q4

REPORT INFORMATION
  Report Type: Report from Study
  Country: US (occurrence: US)
  Receive Date: 20230726
  Receipt Date: 20231012
  Transmission Date: 20240110
  Serious: No
  Sender: FDA-Public Use
  Company Number: US-002147023-NVSC2023US163477

PATIENT
  Age: 2 Year
  Sex: Male

DRUGS (2)
  1. ZOLGENSMA [Suspect]
     Active Substance: ONASEMNOGENE ABEPARVOVEC-XIOI
     Indication: Spinal muscular atrophy
     Dosage: 1 ML, ONCE/SINGLE (5.5 ML VIAL X 2 AND 8.3 ML VIAL X 4)
     Route: 042
     Dates: start: 20230718, end: 20230718
  2. PREDNISOLONE [Concomitant]
     Active Substance: PREDNISOLONE
     Indication: Infusion
     Dosage: 2.5 ML, QD
     Route: 065
     Dates: start: 20230717, end: 20230717

REACTIONS (1)
  - Off label use [Unknown]

NARRATIVE: CASE EVENT DATE: 20230718
